FAERS Safety Report 21142054 (Version 2)
Quarter: 2022Q3

REPORT INFORMATION
  Report Type: Spontaneous
  Country: US (occurrence: US)
  Receive Date: 20220728
  Receipt Date: 20220907
  Transmission Date: 20221027
  Serious: Yes (Hospitalization, Other)
  Sender: FDA-Public Use
  Company Number: US-GLAXOSMITHKLINE-US2022110488

PATIENT

DRUGS (1)
  1. BENLYSTA [Suspect]
     Active Substance: BELIMUMAB
     Indication: Systemic lupus erythematosus
     Dosage: 200 MG, WE, UNDERNEATH THE SKIN, ONCE A WEEK
     Route: 058
     Dates: start: 2017

REACTIONS (7)
  - Systemic lupus erythematosus [Unknown]
  - Underdose [Unknown]
  - Injection site haemorrhage [Unknown]
  - Injection site pain [Unknown]
  - Device use error [Unknown]
  - Accidental exposure to product [Unknown]
  - Incorrect route of product administration [Unknown]
